FAERS Safety Report 14492214 (Version 2)
Quarter: 2018Q2

REPORT INFORMATION
  Report Type: Report from Study
  Country: DE (occurrence: DE)
  Receive Date: 20180206
  Receipt Date: 20180515
  Transmission Date: 20180711
  Serious: Yes (Death, Life-Threatening, Hospitalization)
  Sender: FDA-Public Use
  Company Number: DE-PFIZER INC-2018047991

PATIENT
  Age: 66 Year
  Sex: Male

DRUGS (1)
  1. AMIODARONE HCL [Suspect]
     Active Substance: AMIODARONE HYDROCHLORIDE
     Dosage: UNK
     Route: 065

REACTIONS (9)
  - Abdominal pain [Unknown]
  - Bradycardia [Unknown]
  - Acute coronary syndrome [Unknown]
  - Pneumonia [Unknown]
  - Back pain [Unknown]
  - Dyspnoea [Unknown]
  - Multiple organ dysfunction syndrome [Fatal]
  - Cardiac infection [Unknown]
  - Acute myocardial infarction [Unknown]

NARRATIVE: CASE EVENT DATE: 20170117
